FAERS Safety Report 12188903 (Version 1)
Quarter: 2016Q1

REPORT INFORMATION
  Report Type: Spontaneous
  Country: US (occurrence: US)
  Receive Date: 20160317
  Receipt Date: 20160317
  Transmission Date: 20160526
  Serious: Yes (Hospitalization, Other)
  Sender: FDA-Public Use
  Company Number: US-IPCA LABORATORIES LIMITED-IPC201603-000336

PATIENT
  Sex: Female

DRUGS (10)
  1. SIMVASTATIN. [Suspect]
     Active Substance: SIMVASTATIN
  2. BROMOCRIPTINE [Suspect]
     Active Substance: BROMOCRIPTINE
  3. LORAZEPAM. [Concomitant]
     Active Substance: LORAZEPAM
     Indication: ANXIETY
  4. ZIPRASIDONE. [Concomitant]
     Active Substance: ZIPRASIDONE
  5. METOPROLOL TARTRATE. [Suspect]
     Active Substance: METOPROLOL TARTRATE
  6. ACTOPLUS MET [Suspect]
     Active Substance: METFORMIN HYDROCHLORIDE\PIOGLITAZONE HYDROCHLORIDE
  7. ONGLYZA [Suspect]
     Active Substance: SAXAGLIPTIN HYDROCHLORIDE
  8. ASPIRIN. [Suspect]
     Active Substance: ASPIRIN
  9. ELIQUIS [Suspect]
     Active Substance: APIXABAN
  10. ENALAPRIL MALEATE. [Suspect]
     Active Substance: ENALAPRIL MALEATE

REACTIONS (3)
  - Peripheral swelling [Unknown]
  - Atrial fibrillation [Unknown]
  - Pneumonia [Unknown]
